FAERS Safety Report 7544008-6 (Version None)
Quarter: 2011Q2

REPORT INFORMATION
  Report Type: 
  Country: None (occurrence: None)
  Receive Date: 20110613
  Receipt Date: 20041004
  Transmission Date: 20111010
  Serious: Yes (Hospitalization)
  Sender: FDA-Public Use
  Company Number: PHHO2004AR14241

PATIENT
  Age: 85 Year
  Sex: Female

DRUGS (1)
  1. DIOVAN HCT [Suspect]
     Indication: HYPERTENSION
     Route: 048
     Dates: end: 20041001

REACTIONS (8)
  - PLEURAL EFFUSION [None]
  - PYREXIA [None]
  - BRONCHITIS [None]
  - SUFFOCATION FEELING [None]
  - PNEUMONIA [None]
  - VOMITING [None]
  - COUGH [None]
  - DYSPNOEA [None]
